FAERS Safety Report 13847335 (Version 1)
Quarter: 2017Q3

REPORT INFORMATION
  Report Type: Report from Study
  Country: US (occurrence: BR)
  Receive Date: 20170808
  Receipt Date: 20170808
  Transmission Date: 20171127
  Serious: Yes (Other)
  Sender: FDA-Public Use
  Company Number: US-SUNOVION-2017SUN003417

PATIENT
  Sex: Male
  Weight: 48 kg

DRUGS (2)
  1. BUP [Concomitant]
     Active Substance: BUPROPION HYDROCHLORIDE
  2. INDACATEROL AND GLYCOPYRROLATE [Suspect]
     Active Substance: GLYCOPYRROLATE\INDACATEROL MALEATE
     Indication: SMOKING CESSATION THERAPY
     Dosage: UNK
     Route: 065
     Dates: start: 2017

REACTIONS (7)
  - Visual impairment [Unknown]
  - Deafness [Unknown]
  - Dysphonia [Unknown]
  - Product use in unapproved indication [Unknown]
  - Body height decreased [Unknown]
  - Nasal inflammation [Unknown]
  - Speech disorder [Unknown]
